FAERS Safety Report 8251306-X (Version None)
Quarter: 2012Q2

REPORT INFORMATION
  Report Type: 
  Country: None (occurrence: None)
  Receive Date: 20120402
  Receipt Date: 20120327
  Transmission Date: 20120825
  Serious: Yes (Hospitalization)
  Sender: FDA-Public Use
  Company Number: US-GLAXOSMITHKLINE-A0915623A

PATIENT
  Age: 75 Year
  Sex: Male
  Weight: 85.5 kg

DRUGS (6)
  1. AMARYL [Concomitant]
  2. AVANDIA [Suspect]
     Indication: DIABETES MELLITUS
     Dosage: 4MG PER DAY
     Route: 048
     Dates: start: 20000224, end: 20021017
  3. AVANDAMET [Suspect]
     Indication: DIABETES MELLITUS
     Route: 048
     Dates: start: 20050827, end: 20060201
  4. TOPROL-XL [Concomitant]
  5. ALTACE [Concomitant]
  6. LIPITOR [Concomitant]

REACTIONS (5)
  - CARDIOVASCULAR DISORDER [None]
  - CARDIAC FAILURE CONGESTIVE [None]
  - CORONARY ARTERY DISEASE [None]
  - CARDIAC DISORDER [None]
  - ISCHAEMIC CARDIOMYOPATHY [None]
